FAERS Safety Report 8155888-8 (Version None)
Quarter: 2012Q1

REPORT INFORMATION
  Report Type: 
  Country: None (occurrence: None)
  Receive Date: 20120215
  Receipt Date: 20120130
  Transmission Date: 20120608
  Serious: No
  Sender: FDA-Public Use
  Company Number: 2012SP007759

PATIENT
  Age: 68 Year
  Sex: Male

DRUGS (1)
  1. REMERON [Suspect]
     Indication: PRODUCT USED FOR UNKNOWN INDICATION
     Dosage: 45 MG;ONCE;PO
     Route: 048

REACTIONS (2)
  - OVERDOSE [None]
  - ELECTROCARDIOGRAM QT PROLONGED [None]
